FAERS Safety Report 24273318 (Version 2)
Quarter: 2024Q3

REPORT INFORMATION
  Report Type: Report from Study
  Country: US (occurrence: US)
  Receive Date: 20240902
  Receipt Date: 20240916
  Transmission Date: 20241017
  Serious: Yes (Hospitalization, Other)
  Sender: NOVARTIS
  Company Number: US-002147023-NVSC2024US174444

PATIENT
  Age: 60 Year
  Sex: Female

DRUGS (1)
  1. KESIMPTA [Suspect]
     Active Substance: OFATUMUMAB
     Indication: Multiple sclerosis
     Dosage: UNK, Q28 DAYS
     Route: 058
     Dates: start: 20240614, end: 20240805

REACTIONS (3)
  - Pneumonia [Recovered/Resolved]
  - Cystitis [Recovered/Resolved]
  - Bladder cyst [Recovered/Resolved]

NARRATIVE: CASE EVENT DATE: 20240807
